FAERS Safety Report 22710720 (Version 2)
Quarter: 2024Q1

REPORT INFORMATION
  Report Type: Spontaneous
  Country: BR (occurrence: BR)
  Receive Date: 20230717
  Receipt Date: 20240207
  Transmission Date: 20240410
  Serious: Yes (Other)
  Sender: FDA-Public Use
  Company Number: BR-GLAXOSMITHKLINE-BR2015GSK128790

PATIENT

DRUGS (5)
  1. BENLYSTA [Suspect]
     Active Substance: BELIMUMAB
     Indication: Systemic lupus erythematosus
     Dosage: 800 MG, 2 VIALS OF 400 MG
     Dates: start: 20150629
  2. BENLYSTA [Suspect]
     Active Substance: BELIMUMAB
     Dosage: UNK, 620
  3. BENLYSTA [Suspect]
     Active Substance: BELIMUMAB
     Dosage: 120 MG
  4. BENLYSTA [Suspect]
     Active Substance: BELIMUMAB
     Dosage: 2 DF
     Dates: start: 20150626
  5. INFLUENZA VIRUS VACCINE [Concomitant]
     Active Substance: INFLUENZA VIRUS VACCINE
     Indication: Prophylaxis
     Dosage: UNK

REACTIONS (30)
  - Lupus nephritis [Unknown]
  - Renal surgery [Unknown]
  - Arthritis [Unknown]
  - Pyrexia [Recovering/Resolving]
  - Oropharyngeal pain [Recovering/Resolving]
  - Peripheral swelling [Unknown]
  - Pain in extremity [Recovered/Resolved]
  - Urinary tract infection [Unknown]
  - Weight decreased [Unknown]
  - Chest discomfort [Unknown]
  - Candida infection [Unknown]
  - Decreased immune responsiveness [Unknown]
  - Headache [Recovered/Resolved]
  - Sinusitis [Recovered/Resolved]
  - Symptom recurrence [Recovered/Resolved]
  - Influenza [Recovered/Resolved]
  - Coronavirus infection [Unknown]
  - Illness [Unknown]
  - Pain [Recovered/Resolved]
  - Cough [Recovered/Resolved]
  - Bedridden [Unknown]
  - Nasopharyngitis [Recovered/Resolved]
  - Sneezing [Recovered/Resolved]
  - Protein total decreased [Not Recovered/Not Resolved]
  - Peripheral swelling [Not Recovered/Not Resolved]
  - Generalised oedema [Not Recovered/Not Resolved]
  - Loss of personal independence in daily activities [Unknown]
  - Inappropriate schedule of product administration [Unknown]
  - Product availability issue [Unknown]
  - Product dose omission issue [Unknown]

NARRATIVE: CASE EVENT DATE: 20201213
